FAERS Safety Report 4319738-X (Version None)
Quarter: 2004Q1

REPORT INFORMATION
  Report Type: 
  Country: None (occurrence: None)
  Receive Date: 20040319
  Receipt Date: 20031219
  Transmission Date: 20041129
  Serious: Yes (Hospitalization, Other)
  Sender: FDA-Public Use
  Company Number: US-GLAXOSMITHKLINE-A0443783A

PATIENT
  Age: 77 Year
  Sex: Male
  Weight: 69.1 kg

DRUGS (6)
  1. AVANDIA [Suspect]
     Dosage: 4MG PER DAY
     Route: 048
     Dates: start: 20030801, end: 20031201
  2. LASIX [Concomitant]
  3. COREG [Concomitant]
  4. ASPIRIN [Concomitant]
  5. PAXIL [Concomitant]
  6. TERAZOSIN HCL [Concomitant]

REACTIONS (6)
  - CARDIAC FAILURE CONGESTIVE [None]
  - CHEST PAIN [None]
  - DYSPNOEA EXERTIONAL [None]
  - FLUID RETENTION [None]
  - OEDEMA [None]
  - OEDEMA PERIPHERAL [None]
